FAERS Safety Report 23085626 (Version 1)
Quarter: 2023Q4

REPORT INFORMATION
  Report Type: Spontaneous
  Country: US (occurrence: US)
  Receive Date: 20231019
  Receipt Date: 20231019
  Transmission Date: 20240110
  Serious: No
  Sender: FDA-Public Use
  Company Number: US-PFIZER INC-PV202300171519

PATIENT
  Age: 36 Year
  Sex: Female

DRUGS (1)
  1. XELJANZ XR [Suspect]
     Active Substance: TOFACITINIB CITRATE
     Indication: Dermatomyositis
     Dosage: 11 MG, 1X/DAY
     Route: 048
     Dates: start: 20230622

REACTIONS (5)
  - Drug ineffective for unapproved indication [Unknown]
  - Off label use [Unknown]
  - Peripheral swelling [Unknown]
  - Muscular weakness [Unknown]
  - Loss of personal independence in daily activities [Unknown]

NARRATIVE: CASE EVENT DATE: 20230801
